FAERS Safety Report 4801194-6 (Version None)
Quarter: 2005Q4

REPORT INFORMATION
  Report Type: 
  Country: None (occurrence: None)
  Receive Date: 20051011
  Receipt Date: 20050906
  Transmission Date: 20060501
  Serious: Yes (Other)
  Sender: FDA-Public Use
  Company Number: 8012397

PATIENT
  Age: 27 Year
  Sex: Female

DRUGS (1)
  1. PREDNISOLONE [Suspect]
     Dosage: PO
     Route: 048

REACTIONS (4)
  - CHORIORETINAL DISORDER [None]
  - HAEMODIALYSIS [None]
  - RETINAL DETACHMENT [None]
  - RETINOPATHY HYPERTENSIVE [None]
